FAERS Safety Report 12779728 (Version 2)
Quarter: 2017Q2

REPORT INFORMATION
  Report Type: Spontaneous
  Country: US (occurrence: US)
  Receive Date: 20160926
  Receipt Date: 20170412
  Transmission Date: 20170830
  Serious: No
  Sender: FDA-Public Use
  Company Number: US-PFIZER INC-2016441431

PATIENT
  Sex: Male

DRUGS (1)
  1. INLYTA [Suspect]
     Active Substance: AXITINIB
     Indication: RENAL CELL CARCINOMA
     Dosage: UNK (1.5 MONTHS)

REACTIONS (9)
  - Onychalgia [Unknown]
  - Palmar-plantar erythrodysaesthesia syndrome [Unknown]
  - Pain in extremity [Unknown]
  - Glossodynia [Unknown]
  - Dry mouth [Unknown]
  - Hypertension [Recovered/Resolved]
  - Dysphagia [Unknown]
  - Disease progression [Unknown]
  - Oral pain [Unknown]
